FAERS Safety Report 9615272 (Version 2)
Quarter: 2013Q4

REPORT INFORMATION
  Report Type: Spontaneous
  Country: US (occurrence: US)
  Receive Date: 20131011
  Receipt Date: 20131011
  Transmission Date: 20140711
  Serious: No
  Sender: FDA-Public Use
  Company Number: US-PURDUE-USA-2013-0097428

PATIENT
  Age: 52 Year
  Sex: Female

DRUGS (2)
  1. BUTRANS [Suspect]
     Indication: PAIN
     Dosage: 10 MCG, UNK
     Route: 062
     Dates: start: 20121224
  2. BUTRANS [Suspect]
     Dosage: 20 MCG, UNK
     Route: 062

REACTIONS (9)
  - Extra dose administered [Unknown]
  - Inadequate analgesia [Recovered/Resolved]
  - Drug ineffective [Unknown]
  - Insomnia [Unknown]
  - Breakthrough pain [Unknown]
  - Dizziness [Not Recovered/Not Resolved]
  - Nausea [Recovered/Resolved]
  - Vomiting [Recovered/Resolved]
  - Migraine [Not Recovered/Not Resolved]
